FAERS Safety Report 21146893 (Version 1)
Quarter: 2022Q3

REPORT INFORMATION
  Report Type: Spontaneous
  Country: US (occurrence: None)
  Receive Date: 20220728
  Receipt Date: 20220728
  Transmission Date: 20221026
  Serious: Yes (Other)
  Sender: FDA-Public Use
  Company Number: None

PATIENT
  Age: 59 Year
  Sex: Female
  Weight: 59.4 kg

DRUGS (2)
  1. MAGNESIUM CITRATE [Suspect]
     Active Substance: MAGNESIUM CITRATE
     Indication: Product used for unknown indication
     Dosage: OTHER QUANTITY : 10 OUNCE(S);?OTHER FREQUENCY : ONCE A WEEK;?
     Route: 048
     Dates: start: 20220101, end: 20220511
  2. Linezz [Concomitant]

REACTIONS (1)
  - Gastrointestinal bacterial overgrowth [None]

NARRATIVE: CASE EVENT DATE: 20220329
